FAERS Safety Report 6003166-5 (Version None)
Quarter: 2008Q4

REPORT INFORMATION
  Report Type: 
  Country: None (occurrence: None)
  Receive Date: 20081216
  Receipt Date: 20081211
  Transmission Date: 20090506
  Serious: Yes (Other)
  Sender: FDA-Public Use
  Company Number: BR-JNJFOC-20081203561

PATIENT
  Sex: Female
  Weight: 71 kg

DRUGS (1)
  1. MICRONOR [Suspect]
     Indication: CONTRACEPTION
     Route: 065

REACTIONS (2)
  - MENSTRUATION IRREGULAR [None]
  - POLYCYSTIC OVARIES [None]
